FAERS Safety Report 4432881-X (Version None)
Quarter: 2004Q3

REPORT INFORMATION
  Report Type: 
  Country: None (occurrence: None)
  Receive Date: 20040823
  Receipt Date: 20040810
  Transmission Date: 20050211
  Serious: Yes (Death)
  Sender: FDA-Public Use
  Company Number: CIP04001773

PATIENT
  Age: 81 Year
  Sex: Male

DRUGS (5)
  1. MACRODANTIN [Suspect]
     Indication: URINARY TRACT DISORDER
     Dosage: 100 MG DAILY, ORAL
     Route: 048
     Dates: end: 20030302
  2. LASIX [Suspect]
     Dosage: 80 MG DAILY, ORAL
     Route: 048
     Dates: end: 20030125
  3. AVANZA (MIRTAZAPINE) [Suspect]
     Indication: DEPRESSION
     Dosage: 45 MG DAILY, ORAL
     Route: 048
     Dates: end: 20030125
  4. TRAMADOL HYDROCHLORIDE [Suspect]
     Indication: ABDOMINAL PAIN
     Dosage: 50 MG, AS NEEDED, ORAL
     Route: 048
     Dates: end: 20030125
  5. TEMAZEPAM [Suspect]
     Indication: SLEEP DISORDER
     Dosage: 10 MG, DAILY
     Dates: end: 20030125

REACTIONS (2)
  - HEPATIC FAILURE [None]
  - PULMONARY HYPERTENSION [None]
